FAERS Safety Report 6979360-3 (Version None)
Quarter: 2010Q3

REPORT INFORMATION
  Report Type: 
  Country: None (occurrence: None)
  Receive Date: 20100913
  Receipt Date: 20100830
  Transmission Date: 20110219
  Serious: Yes (Other)
  Sender: FDA-Public Use
  Company Number: TW-MYLANLABS-2010S1015808

PATIENT
  Age: 63 Year
  Sex: Male

DRUGS (3)
  1. QUETIAPINE [Interacting]
     Indication: MANIA
     Dosage: INITIAL DOSE
     Route: 065
  2. QUETIAPINE [Interacting]
     Dosage: TITRATED UP FROM 50 MG/DAY OVER 3 WEEKS.
     Route: 065
  3. VALPROIC ACID [Suspect]
     Indication: MANIA
     Route: 065

REACTIONS (2)
  - DELIRIUM [None]
  - DRUG INTERACTION [None]
